FAERS Safety Report 4644514-8 (Version None)
Quarter: 2005Q2

REPORT INFORMATION
  Report Type: 
  Country: None (occurrence: None)
  Receive Date: 20050425
  Receipt Date: 20050425
  Transmission Date: 20051028
  Serious: Yes (Hospitalization)
  Sender: FDA-Public Use
  Company Number: None

PATIENT
  Age: 54 Year
  Sex: Female

DRUGS (4)
  1. PROCRIT [Suspect]
     Indication: ANAEMIA OF MALIGNANT DISEASE
     Dosage: 90000 IU, 1 IN 1 WEEK
  2. TAXOTERE [Suspect]
     Indication: BREAST CANCER STAGE IV
     Dates: start: 20041116
  3. ADRIAMYCIN PFS [Suspect]
     Indication: BREAST CANCER STAGE IV
     Dates: start: 20041116
  4. CYTOXAN [Suspect]
     Indication: BREAST CANCER STAGE IV
     Dates: start: 20041116

REACTIONS (11)
  - ABDOMINAL PAIN [None]
  - BREAST CANCER RECURRENT [None]
  - CHEST PAIN [None]
  - DIVERTICULITIS [None]
  - DYSPNOEA [None]
  - NAUSEA [None]
  - NEUTROPENIA [None]
  - SEPSIS [None]
  - SUBCLAVIAN VEIN THROMBOSIS [None]
  - VOMITING [None]
  - WOUND [None]
